FAERS Safety Report 6692927-5 (Version None)
Quarter: 2010Q2

REPORT INFORMATION
  Report Type: 
  Country: None (occurrence: None)
  Receive Date: 20100422
  Receipt Date: 20100409
  Transmission Date: 20101027
  Serious: Yes (Other)
  Sender: FDA-Public Use
  Company Number: HU-ELI_LILLY_AND_COMPANY-HU201004003474

PATIENT
  Age: 40 Year
  Sex: Male

DRUGS (2)
  1. ZYPADHERA [Suspect]
     Indication: SCHIZOPHRENIA
     Dosage: 300 MG, 2/M
     Route: 030
     Dates: start: 20100201, end: 20100407
  2. ZYPADHERA [Suspect]
     Dosage: 405 MG, 2/M
     Route: 030
     Dates: start: 20100408

REACTIONS (3)
  - MALABSORPTION FROM INJECTION SITE [None]
  - SEDATION [None]
  - SOMNOLENCE [None]
